FAERS Safety Report 6061864-1 (Version None)
Quarter: 2009Q1

REPORT INFORMATION
  Report Type: 
  Country: None (occurrence: None)
  Receive Date: 20090202
  Receipt Date: 20090120
  Transmission Date: 20090719
  Serious: Yes (Hospitalization)
  Sender: FDA-Public Use
  Company Number: PHHY2009FR02456

PATIENT
  Sex: Female

DRUGS (9)
  1. STERDEX (NVO) [Suspect]
     Indication: CATARACT OPERATION
     Dosage: 1 DF, ONCE/SINGLE
     Dates: start: 20081014
  2. TETRACAINE 1% FAURE (NVO) [Suspect]
     Indication: CATARACT OPERATION
     Dosage: 1 DF, ONCE/SINGLE
     Dates: start: 20081014
  3. TROPICAMIDE (NVO) [Suspect]
     Indication: CATARACT OPERATION
     Dosage: 1 DF, ONCE/SINGLE
     Dates: start: 20081014
  4. PILOCARPINE 1% FAURE (NVO) [Suspect]
     Indication: CATARACT OPERATION
     Dosage: 1 DF, ONCE/SINGLE
     Dates: start: 20081014
  5. ADRENALINE [Suspect]
     Indication: CATARACT OPERATION
     Dosage: 1 DF, ONCE/SINGLE
     Dates: start: 20081014
  6. NEOSYNEPHRINE FAURE [Suspect]
     Indication: CATARACT OPERATION
     Dosage: 1 DF, ONCE/SINGLE
     Dates: start: 20081014
  7. OCUFEN [Suspect]
     Indication: CATARACT OPERATION
     Dosage: 1 DF, ONCE/SINGLE
     Dates: start: 20081014
  8. CARBOCAINE [Suspect]
     Indication: CATARACT OPERATION
     Dosage: 1 DF, ONCE/SINGLE
     Dates: start: 20081014
  9. TOBRADEX [Suspect]

REACTIONS (5)
  - CATARACT OPERATION COMPLICATION [None]
  - ENDOPHTHALMITIS [None]
  - UVEITIS [None]
  - VISUAL ACUITY REDUCED [None]
  - VITRITIS [None]
